FAERS Safety Report 6146995-X (Version None)
Quarter: 2009Q2

REPORT INFORMATION
  Report Type: 
  Country: None (occurrence: None)
  Receive Date: 20090403
  Receipt Date: 20090324
  Transmission Date: 20091009
  Serious: Yes (Life-Threatening)
  Sender: FDA-Public Use
  Company Number: DSA_33416_2009

PATIENT
  Age: 85 Year
  Sex: Female

DRUGS (12)
  1. ENALAPRIL MALEATE [Suspect]
     Indication: CARDIAC FAILURE
     Dosage: (2.5 MG BID ORAL)
     Route: 048
     Dates: start: 20081107, end: 20081214
  2. NOVOMIX /01475801/ (NOVOMIX - INSULIN ASPART, BIPHASIC ISOPHANE [INJEC [Suspect]
     Indication: TYPE 2 DIABETES MELLITUS
     Dosage: (26-12-16 IU SUBCUTANEOUS)
     Route: 058
     Dates: start: 20000101, end: 20081214
  3. REPAGLINIDE [Suspect]
     Indication: TYPE 2 DIABETES MELLITUS
     Dosage: (2 MG TID ORAL)
     Route: 048
     Dates: start: 20000101, end: 20081214
  4. CARVEDILOL [Suspect]
     Indication: CARDIAC FAILURE
     Dosage: (6.25 MG  BID ORAL), (6.25 MG QD ORAL)
     Route: 048
     Dates: end: 20081106
  5. CARVEDILOL [Suspect]
     Indication: CARDIAC FAILURE
     Dosage: (6.25 MG  BID ORAL), (6.25 MG QD ORAL)
     Route: 048
     Dates: start: 20081107, end: 20081214
  6. LANTUS [Suspect]
     Indication: TYPE 2 DIABETES MELLITUS
     Dosage: (16 IU QD SUBCUTANEOUS)
     Route: 058
     Dates: start: 20000101
  7. ALLOPURINOL [Concomitant]
  8. DIGITOXIN TAB [Concomitant]
  9. LEVOTHYROXINE SODIUM [Concomitant]
  10. OMEPRAZOLE [Concomitant]
  11. SPIRONOLACTONE [Concomitant]
  12. TORSEMIDE [Concomitant]

REACTIONS (4)
  - DRUG INTERACTION [None]
  - FALL [None]
  - HYPOGLYCAEMIA [None]
  - UNRESPONSIVE TO STIMULI [None]
